FAERS Safety Report 6516578-8 (Version None)
Quarter: 2009Q4

REPORT INFORMATION
  Report Type: 
  Country: None (occurrence: None)
  Receive Date: 20091223
  Receipt Date: 20091221
  Transmission Date: 20100525
  Serious: Yes (Hospitalization)
  Sender: FDA-Public Use
  Company Number: US-ELI_LILLY_AND_COMPANY-US200912004665

PATIENT
  Sex: Female
  Weight: 81.633 kg

DRUGS (8)
  1. BYETTA [Suspect]
     Indication: TYPE 2 DIABETES MELLITUS
     Dosage: 5 UG, 2/D
     Route: 058
     Dates: start: 20060101, end: 20070101
  2. BYETTA [Suspect]
     Dosage: 5 UG, 2/D
     Route: 058
     Dates: start: 20070101, end: 20090501
  3. BYETTA [Suspect]
     Dosage: 5 UG, 2/D
     Route: 058
     Dates: start: 20090501, end: 20091201
  4. BYETTA [Suspect]
     Dosage: 10 UG, 2/D
     Route: 058
     Dates: start: 20091201
  5. METFORMIN HCL [Concomitant]
     Indication: TYPE 2 DIABETES MELLITUS
     Dosage: 500 MG, UNKNOWN
  6. XANAX [Concomitant]
     Indication: PANIC ATTACK
     Dosage: 1 MG, 3/D
  7. SYNTHROID [Concomitant]
     Indication: THYROIDECTOMY
     Dosage: 125 UG, DAILY (1/D)
  8. LORCET-HD [Concomitant]
     Indication: ARTHRALGIA
     Dosage: UNK, AS NEEDED

REACTIONS (4)
  - ABDOMINAL PAIN UPPER [None]
  - CHOLELITHIASIS [None]
  - INJECTION SITE HAEMORRHAGE [None]
  - WEIGHT FLUCTUATION [None]
